FAERS Safety Report 20660620 (Version 1)
Quarter: 2022Q1

REPORT INFORMATION
  Report Type: Spontaneous
  Country: US (occurrence: US)
  Receive Date: 20220331
  Receipt Date: 20220331
  Transmission Date: 20220424
  Serious: No
  Sender: FDA-Public Use
  Company Number: US-PFIZER INC-202101145720

PATIENT
  Age: 65 Year
  Sex: Male

DRUGS (2)
  1. IBRANCE [Suspect]
     Active Substance: PALBOCICLIB
     Indication: Breast cancer
     Dosage: 125 MG, 1 DAILY FOR 21 DAYS, CYCLIC
     Route: 048
     Dates: start: 20210827
  2. MODERNA COVID-19 VACCINE [Suspect]
     Active Substance: ELASOMERAN
     Dosage: SINGLE
     Dates: start: 20210829

REACTIONS (2)
  - Vaccination site pain [Unknown]
  - Fatigue [Unknown]
